FAERS Safety Report 11165236 (Version 1)
Quarter: 2015Q2

REPORT INFORMATION
  Report Type: Spontaneous
  Country: US (occurrence: US)
  Receive Date: 20150604
  Receipt Date: 20150604
  Transmission Date: 20150821
  Serious: No
  Sender: FDA-Public Use
  Company Number: US-ROXANE LABORATORIES, INC.-2015-RO-00924RO

PATIENT
  Age: 82 Year
  Sex: Male

DRUGS (3)
  1. TORSEMIDE. [Suspect]
     Active Substance: TORSEMIDE
     Indication: POLYURIA
     Dosage: 40 MG
     Route: 065
     Dates: start: 20150220
  2. INSULIN [Concomitant]
     Active Substance: INSULIN NOS
     Route: 065
  3. TORSEMIDE. [Suspect]
     Active Substance: TORSEMIDE
     Indication: BLOOD PRESSURE

REACTIONS (1)
  - Blood glucose increased [Not Recovered/Not Resolved]
